FAERS Safety Report 7125862-9 (Version None)
Quarter: 2010Q4

REPORT INFORMATION
  Report Type: 
  Country: None (occurrence: None)
  Receive Date: 20101129
  Receipt Date: 20101115
  Transmission Date: 20110411
  Serious: Yes (Hospitalization)
  Sender: FDA-Public Use
  Company Number: US-ELI_LILLY_AND_COMPANY-US201009002390

PATIENT
  Sex: Male
  Weight: 82.993 kg

DRUGS (10)
  1. PEMETREXED [Suspect]
     Indication: NON-SMALL CELL LUNG CANCER
     Dosage: 500 MG/M2, EVERY 21 DAYS
     Route: 042
     Dates: start: 20100603
  2. CARBOPLATIN [Suspect]
     Indication: NON-SMALL CELL LUNG CANCER
     Dosage: 6 AUC EVERY 21 DAYS
     Route: 042
     Dates: start: 20100603, end: 20100805
  3. FOLIC ACID [Concomitant]
     Dates: start: 20100519
  4. VITAMIN B-12 [Concomitant]
     Dates: start: 20100519
  5. OXYCONTIN [Concomitant]
     Indication: PAIN
     Dosage: 10 MG, UNKNOWN
     Dates: start: 20100519
  6. PROMETHAZINE [Concomitant]
     Indication: ANTIEMETIC SUPPORTIVE CARE
     Dosage: 0.5 D/F, UNKNOWN 25MG - HALF A TABLET
     Dates: start: 20100528
  7. ZOFRAN [Concomitant]
     Indication: ANTIEMETIC SUPPORTIVE CARE
     Dosage: 8 MG, UNKNOWN
     Dates: start: 20100830
  8. LISINOPRIL [Concomitant]
     Indication: HYPERTENSION
     Dosage: 5 MG, UNKNOWN
     Dates: start: 20100624
  9. VITAMIN D [Concomitant]
     Indication: PROPHYLAXIS
     Dosage: 400 MG, UNKNOWN
     Dates: start: 20100510
  10. LOVAZA [Concomitant]
     Indication: PROPHYLAXIS
     Dates: start: 20100510

REACTIONS (1)
  - ANAEMIA [None]
